FAERS Safety Report 7463564-X (Version None)
Quarter: 2011Q2

REPORT INFORMATION
  Report Type: 
  Country: None (occurrence: None)
  Receive Date: 20110506
  Receipt Date: 20110428
  Transmission Date: 20111010
  Serious: Yes (Hospitalization)
  Sender: FDA-Public Use
  Company Number: US-ELI_LILLY_AND_COMPANY-US201104008166

PATIENT
  Sex: Male

DRUGS (3)
  1. TAXOTERE [Concomitant]
     Dosage: UNK, UNKNOWN
     Route: 065
  2. GEMZAR [Suspect]
     Indication: TONGUE NEOPLASM MALIGNANT STAGE UNSPECIFIED
     Dosage: UNK, UNKNOWN
     Route: 065
     Dates: start: 20100223
  3. TAXOL [Concomitant]
     Dosage: UNK, UNKNOWN
     Route: 065

REACTIONS (3)
  - OFF LABEL USE [None]
  - HOSPITALISATION [None]
  - FATIGUE [None]
